FAERS Safety Report 8186147-5 (Version None)
Quarter: 2012Q1

REPORT INFORMATION
  Report Type: 
  Country: None (occurrence: None)
  Receive Date: 20120306
  Receipt Date: 20120301
  Transmission Date: 20120608
  Serious: No
  Sender: FDA-Public Use
  Company Number: US-PFIZER INC-2012056558

PATIENT
  Sex: Male

DRUGS (2)
  1. LIPITOR [Suspect]
     Dosage: 40 MG, UNK
     Route: 048
  2. LIPITOR [Suspect]
     Dosage: 60 MG, ONE AND HALF TABLET OF 40 MG
     Route: 048

REACTIONS (1)
  - HEPATIC ENZYME INCREASED [None]
